FAERS Safety Report 11678605 (Version 1)
Quarter: 2015Q4

REPORT INFORMATION
  Report Type: Spontaneous
  Country: NP (occurrence: NP)
  Receive Date: 20151028
  Receipt Date: 20151028
  Transmission Date: 20160304
  Serious: Yes (Other)
  Sender: FDA-Public Use
  Company Number: NP-IMPAX LABORATORIES, INC-2015-IPXL-01056

PATIENT
  Age: 26 Year
  Sex: Female

DRUGS (3)
  1. TIZANIDINE HYDROCHLORIDE. [Suspect]
     Active Substance: TIZANIDINE HYDROCHLORIDE
     Indication: TORTICOLLIS
     Dosage: 2 MG, 3 /DAY
     Route: 065
  2. FAMOTIDINE. [Interacting]
     Active Substance: FAMOTIDINE
     Indication: DYSPEPSIA
     Dosage: 40 MG, 1 /DAY
     Route: 065
  3. ACETAMINOPHEN. [Concomitant]
     Active Substance: ACETAMINOPHEN
     Indication: NECK PAIN
     Dosage: 500 MG, 4 /DAY
     Route: 065

REACTIONS (3)
  - Cystitis noninfective [Recovering/Resolving]
  - Drug level increased [Unknown]
  - Drug interaction [Unknown]
